FAERS Safety Report 16000909 (Version 6)
Quarter: 2023Q4

REPORT INFORMATION
  Report Type: Spontaneous
  Country: FR (occurrence: FR)
  Receive Date: 20190225
  Receipt Date: 20231218
  Transmission Date: 20240109
  Serious: Yes (Hospitalization)
  Sender: FDA-Public Use
  Company Number: PHHY2018FR125217

PATIENT
  Age: 74 Year
  Sex: Female
  Weight: 90 kg

DRUGS (10)
  1. TASIGNA [Suspect]
     Active Substance: NILOTINIB
     Indication: Chronic myeloid leukaemia
     Dosage: UNK
     Route: 048
     Dates: start: 20180131
  2. BOSULIF [Suspect]
     Active Substance: BOSUTINIB MONOHYDRATE
     Indication: Chronic myeloid leukaemia
     Dosage: UNK
     Route: 065
  3. BOSULIF [Suspect]
     Active Substance: BOSUTINIB MONOHYDRATE
     Dosage: 400 MG, DAILY
     Route: 065
     Dates: start: 20170531, end: 20170915
  4. BOSULIF [Suspect]
     Active Substance: BOSUTINIB MONOHYDRATE
     Dosage: 200 MG, DAILY
     Route: 065
     Dates: start: 20171206, end: 20171226
  5. BOSULIF [Suspect]
     Active Substance: BOSUTINIB MONOHYDRATE
     Dosage: UNK
     Route: 065
  6. METFORMIN HYDROCHLORIDE [Concomitant]
     Active Substance: METFORMIN HYDROCHLORIDE
     Indication: Type 2 diabetes mellitus
     Dosage: UNK
     Route: 048
     Dates: start: 201603
  7. ASPIRIN [Concomitant]
     Active Substance: ASPIRIN
     Indication: Prophylaxis
     Dosage: UNK
     Route: 048
  8. ASPIRIN [Concomitant]
     Active Substance: ASPIRIN
     Dosage: UNK
     Route: 048
  9. ALTHIAZIDE\SPIRONOLACTONE [Concomitant]
     Active Substance: ALTHIAZIDE\SPIRONOLACTONE
     Indication: Diuretic therapy
     Dosage: UNK
     Route: 048
  10. ALTHIAZIDE\SPIRONOLACTONE [Concomitant]
     Active Substance: ALTHIAZIDE\SPIRONOLACTONE
     Indication: Hypertension
     Dosage: UNK
     Route: 048

REACTIONS (11)
  - Pain in extremity [Recovered/Resolved]
  - Road traffic accident [Recovered/Resolved]
  - Atrial fibrillation [Recovered/Resolved]
  - Atrial fibrillation [Recovered/Resolved]
  - Rash pruritic [Recovered/Resolved]
  - Hepatic pain [Recovered/Resolved]
  - Aspartate aminotransferase increased [Recovered/Resolved]
  - Alanine aminotransferase increased [Recovered/Resolved]
  - Vomiting [Recovered/Resolved]
  - Constipation [Recovered/Resolved]
  - Hepatic cytolysis [Recovered/Resolved]

NARRATIVE: CASE EVENT DATE: 20170913
